FAERS Safety Report 10125291 (Version 2)
Quarter: 2015Q1

REPORT INFORMATION
  Report Type: Other
  Country: US (occurrence: US)
  Receive Date: 20140427
  Receipt Date: 20150210
  Transmission Date: 20150720
  Serious: Yes (Hospitalization, Other)
  Sender: FDA-Public Use
  Company Number: US-GSKPPD-2014GSK025567

PATIENT
  Age: 68 Year
  Sex: Male

DRUGS (5)
  1. CLOPIDOGREL [Concomitant]
     Active Substance: CLOPIDOGREL BISULFATE
     Dosage: INDEFINITELY
     Route: 048
     Dates: start: 20050525
  2. AVANDIA [Suspect]
     Active Substance: ROSIGLITAZONE MALEATE
     Indication: DIABETES MELLITUS
     Dosage: RESUMED AS DISCHARGE MEDICATION ON 27 MAY 2005?? DATES OF AVANDIA USE COULD NOT BE CONFIRMED IN RECO
     Route: 048
  3. ASPIRIN. [Concomitant]
     Active Substance: ASPIRIN
     Dosage: WITH FOOD
     Route: 048
  4. NITROGLYCERIN. [Concomitant]
     Active Substance: NITROGLYCERIN
     Dosage: 1 IS TO 150 ?ONE TABLET EVERY 5 MINUTES ?AS NEEDED FOR CHEST PAIN
     Route: 060
  5. FOSINOPRIL/HYDROCHLOROTHIAZIDE [Concomitant]
     Active Substance: FOSINOPRIL\HYDROCHLOROTHIAZIDE
     Dosage: 20 MG PER 12.5MG ?RESUMED ON 27 MAY 2005
     Route: 048

REACTIONS (1)
  - Coronary arterial stent insertion [Recovered/Resolved]

NARRATIVE: CASE EVENT DATE: 20050525
